FAERS Safety Report 5094284-7 (Version None)
Quarter: 2006Q3

REPORT INFORMATION
  Report Type: 
  Country: None (occurrence: None)
  Receive Date: 20060831
  Receipt Date: 20060828
  Transmission Date: 20061208
  Serious: Yes (Hospitalization)
  Sender: FDA-Public Use
  Company Number: US-GLAXOSMITHKLINE-A0618342A

PATIENT
  Age: 57 Year
  Sex: Female

DRUGS (21)
  1. CITRUCEL CAPLETS [Suspect]
     Indication: GASTROINTESTINAL DISORDER
     Route: 048
     Dates: start: 20060601, end: 20060801
  2. CITRUCEL FIBERSMOOTHIE [Suspect]
     Indication: GASTROINTESTINAL DISORDER
     Route: 048
     Dates: start: 20060601, end: 20060801
  3. ENTEX PSE [Concomitant]
  4. FLONASE [Concomitant]
  5. ULTRAM [Concomitant]
     Dosage: 50MG TWICE PER DAY
  6. RELAFEN [Concomitant]
     Dosage: 500MG TWICE PER DAY
  7. TUMS, REGULAR STRENGTH [Concomitant]
  8. LOMOTIL [Concomitant]
  9. LAMICTAL [Concomitant]
     Dosage: 150MG TWICE PER DAY
  10. WELLBUTRIN SR [Concomitant]
     Dosage: 200MG TWICE PER DAY
  11. CELEXA [Concomitant]
     Dosage: 40MG THREE TIMES PER DAY
  12. ZYPREXA [Concomitant]
     Dosage: 5MG THREE TIMES PER DAY
  13. RESTORIL [Concomitant]
     Dosage: 30MG AS REQUIRED
  14. TYLENOL [Concomitant]
  15. MULTI-VITAMIN [Concomitant]
  16. FERROSEQUEL [Concomitant]
     Dosage: 50MG PER DAY
  17. FOLIC ACID [Concomitant]
     Dosage: 400MG PER DAY
  18. VITAMIN D [Concomitant]
     Dosage: 400IU PER DAY
  19. CALCIUM/MAGNESIUM/ZINC [Concomitant]
  20. SUPER B COMPLEX [Concomitant]
  21. ACIPHEX [Concomitant]

REACTIONS (8)
  - BLOOD PRESSURE INCREASED [None]
  - DIARRHOEA [None]
  - DRUG INEFFECTIVE [None]
  - FAECAL VOLUME DECREASED [None]
  - FLATULENCE [None]
  - INFREQUENT BOWEL MOVEMENTS [None]
  - INTESTINAL OBSTRUCTION [None]
  - PAIN [None]
